FAERS Safety Report 10110841 (Version 1)
Quarter: 2014Q2

REPORT INFORMATION
  Report Type: Spontaneous
  Country: US (occurrence: None)
  Receive Date: 20140421
  Receipt Date: 20140421
  Transmission Date: 20141212
  Serious: No
  Sender: FDA-Public Use
  Company Number: AEGR000314

PATIENT
  Age: 46 Year
  Sex: Male
  Weight: 96.6 kg

DRUGS (3)
  1. JUXTAPID [Suspect]
     Indication: TYPE IIA HYPERLIPIDAEMIA
     Route: 048
     Dates: start: 20140210
  2. CRESTOR (ROSUVASTATIN CALCIUM) [Concomitant]
  3. ZETIA (EZETIMIBE) [Concomitant]

REACTIONS (3)
  - Hunger [None]
  - Headache [None]
  - Weight decreased [None]
